FAERS Safety Report 4383091-6 (Version None)
Quarter: 2004Q2

REPORT INFORMATION
  Report Type: 
  Country: None (occurrence: None)
  Receive Date: 20040622
  Receipt Date: 20040622
  Transmission Date: 20050107
  Serious: Yes (Hospitalization)
  Sender: FDA-Public Use
  Company Number: None

PATIENT
  Age: 72 Year
  Sex: Female

DRUGS (3)
  1. DILANTIN [Suspect]
     Indication: CONVULSION
     Dosage: ?-PO
     Route: 048
     Dates: start: 20040223
  2. DURAGESIC [Concomitant]
  3. WARFARIN SODIUM [Concomitant]

REACTIONS (6)
  - ASTHENIA [None]
  - BEDRIDDEN [None]
  - DEPRESSED LEVEL OF CONSCIOUSNESS [None]
  - DRUG TOXICITY [None]
  - PYREXIA [None]
  - TARDIVE DYSKINESIA [None]
